FAERS Safety Report 8504240-1 (Version None)
Quarter: 2012Q2

REPORT INFORMATION
  Report Type: 
  Country: None (occurrence: None)
  Receive Date: 20120405
  Receipt Date: 20090423
  Transmission Date: 20120825
  Serious: Yes (Other)
  Sender: FDA-Public Use
  Company Number: PHEH2009US04091

PATIENT
  Age: 71 Year
  Sex: Female

DRUGS (1)
  1. RECLAST [Suspect]
     Dates: start: 20090421

REACTIONS (3)
  - EYE SWELLING [None]
  - ANAPHYLACTIC REACTION [None]
  - PRURITUS [None]
